FAERS Safety Report 7547369-7 (Version None)
Quarter: 2011Q2

REPORT INFORMATION
  Report Type: 
  Country: None (occurrence: None)
  Receive Date: 20110614
  Receipt Date: 20110608
  Transmission Date: 20111010
  Serious: Yes (Other)
  Sender: FDA-Public Use
  Company Number: JP-CEPHALON-2011002990

PATIENT
  Age: 62 Year
  Sex: Male

DRUGS (5)
  1. ACYCLOVIR [Concomitant]
     Dates: start: 20110517
  2. SULFAMETHOXAZOLE AND TRIMETHOPRIM [Concomitant]
     Dates: start: 20110517
  3. BENDAMUSTINE HCL [Suspect]
     Indication: B-CELL LYMPHOMA
     Route: 042
     Dates: start: 20110517, end: 20110608
  4. DEXAMETHASONE SODIUM PHOSPHATE [Concomitant]
     Dates: start: 20110517
  5. GRANISETRON HCL [Concomitant]
     Dates: start: 20110517

REACTIONS (1)
  - ANAPHYLACTIC SHOCK [None]
